FAERS Safety Report 8504000 (Version 4)
Quarter: 2014Q1

REPORT INFORMATION
  Report Type: Spontaneous
  Country: US (occurrence: US)
  Receive Date: 20120411
  Receipt Date: 20140225
  Transmission Date: 20141002
  Serious: Yes (Other)
  Sender: FDA-Public Use
  Company Number: US-ROCHE-1056131

PATIENT
  Sex: Female
  Weight: 49.03 kg

DRUGS (4)
  1. ACCUTANE [Suspect]
     Indication: ACNE
     Dosage: 40 MG 1 DAY ALTERNATING WITH 60 MG
     Route: 065
     Dates: start: 20010829, end: 20020107
  2. ACCUTANE [Suspect]
     Route: 065
     Dates: start: 20020627
  3. MINOCIN [Concomitant]
     Route: 065
     Dates: start: 20001012
  4. DOXYCYCLINE [Concomitant]
     Route: 065
     Dates: start: 1997

REACTIONS (5)
  - Diverticulitis [Unknown]
  - Inflammatory bowel disease [Unknown]
  - Depressed mood [Unknown]
  - Irritable bowel syndrome [Unknown]
  - Acne [Unknown]
